FAERS Safety Report 6195781-3 (Version None)
Quarter: 2009Q2

REPORT INFORMATION
  Report Type: 
  Country: None (occurrence: None)
  Receive Date: 20090520
  Receipt Date: 20090419
  Transmission Date: 20091009
  Serious: No
  Sender: FDA-Public Use
  Company Number: US-BAYER-200918726NA

PATIENT
  Age: 56 Year
  Sex: Male

DRUGS (2)
  1. AVELOX [Suspect]
     Indication: OROPHARYNGEAL PAIN
     Dosage: TOTAL DAILY DOSE: 400 MG  UNIT DOSE: 400 MG
     Route: 048
     Dates: start: 20090310, end: 20090320
  2. HYTRIN [Concomitant]

REACTIONS (1)
  - TENDON PAIN [None]
